FAERS Safety Report 10087068 (Version 1)
Quarter: 2014Q2

REPORT INFORMATION
  Report Type: Spontaneous
  Country: US (occurrence: US)
  Receive Date: 20140418
  Receipt Date: 20140418
  Transmission Date: 20141212
  Serious: Yes (Hospitalization, Other)
  Sender: FDA-Public Use
  Company Number: US-ELI_LILLY_AND_COMPANY-US201404002871

PATIENT
  Age: 77 Year
  Sex: Male

DRUGS (3)
  1. HUMULIN 30% REGULAR, 70% NPH [Suspect]
     Indication: TYPE 2 DIABETES MELLITUS
     Dosage: 20 U, EACH MORNING
     Route: 065
     Dates: start: 2000
  2. HUMULIN 30% REGULAR, 70% NPH [Suspect]
     Dosage: 10 U, IN THE AFTERNOON
     Route: 065
     Dates: start: 2000
  3. VYTORIN [Concomitant]

REACTIONS (2)
  - Coronary artery occlusion [Unknown]
  - Blood glucose increased [Unknown]
